FAERS Safety Report 4990328-9 (Version None)
Quarter: 2006Q2

REPORT INFORMATION
  Report Type: 
  Country: None (occurrence: None)
  Receive Date: 20060503
  Receipt Date: 20060413
  Transmission Date: 20061013
  Serious: Yes (Other)
  Sender: FDA-Public Use
  Company Number: 2006AP01732

PATIENT
  Age: 70 Year
  Sex: Male

DRUGS (1)
  1. MEROPEN [Suspect]
     Route: 041
     Dates: start: 20050301, end: 20050301

REACTIONS (1)
  - LIVER DISORDER [None]
